FAERS Safety Report 15983580 (Version 3)
Quarter: 2021Q2

REPORT INFORMATION
  Report Type: Spontaneous
  Country: FR (occurrence: FR)
  Receive Date: 20190220
  Receipt Date: 20210504
  Transmission Date: 20210716
  Serious: Yes (Hospitalization)
  Sender: FDA-Public Use
  Company Number: FR-ROCHE-2266147

PATIENT
  Sex: Male

DRUGS (6)
  1. CYCLOPHOSPHAMIDE. [Suspect]
     Active Substance: CYCLOPHOSPHAMIDE
     Indication: FOLLICULAR LYMPHOMA
     Dosage: MOST RECENT DOSE PRIOR TO AE 09/JAN/2019
     Route: 065
     Dates: start: 20190109
  2. PREDNISONE. [Suspect]
     Active Substance: PREDNISONE
     Indication: FOLLICULAR LYMPHOMA
     Dosage: MOST RECENT DOSE PRIOR TO AE 09/JAN/2019
     Route: 065
     Dates: start: 20190109
  3. GRANOCYTE [Suspect]
     Active Substance: LENOGRASTIM
     Indication: PRODUCT USED FOR UNKNOWN INDICATION
     Route: 065
     Dates: start: 201901
  4. DOXORUBICIN [Suspect]
     Active Substance: DOXORUBICIN
     Indication: FOLLICULAR LYMPHOMA
     Dosage: MOST RECENT DOSE PRIOR TO AE 09/JAN/2019
     Route: 065
     Dates: start: 20190109
  5. RITUXIMAB. [Suspect]
     Active Substance: RITUXIMAB
     Indication: FOLLICULAR LYMPHOMA
     Dosage: MOST RECENT DOSE PRIOR TO AE 09/JAN/2019
     Route: 065
     Dates: start: 20190109
  6. ONCOVIN [Suspect]
     Active Substance: VINCRISTINE SULFATE
     Indication: FOLLICULAR LYMPHOMA
     Dosage: MOST RECENT DOSE PRIOR TO AE 09/JAN/2019
     Route: 065
     Dates: start: 20190109

REACTIONS (3)
  - Dyspnoea [Unknown]
  - Pulmonary embolism [Unknown]
  - Arthralgia [Unknown]

NARRATIVE: CASE EVENT DATE: 201901
